FAERS Safety Report 5751445-9 (Version None)
Quarter: 2008Q2

REPORT INFORMATION
  Report Type: 
  Country: None (occurrence: None)
  Receive Date: 20080528
  Receipt Date: 20080507
  Transmission Date: 20081010
  Serious: Yes (Life-Threatening, Hospitalization)
  Sender: FDA-Public Use
  Company Number: DE-GENENTECH-258264

PATIENT
  Sex: Female
  Weight: 86 kg

DRUGS (6)
  1. TRASTUZUMAB [Suspect]
     Indication: BREAST CANCER METASTATIC
     Dosage: 172 MG, UNK
     Dates: start: 20031001
  2. DOCETAXEL [Suspect]
     Indication: DRUG USE FOR UNKNOWN INDICATION
     Dates: start: 20031001
  3. BENDAMUSTINE [Suspect]
     Indication: DRUG USE FOR UNKNOWN INDICATION
  4. DEXAMETHASONE TAB [Suspect]
     Indication: DIABETES MELLITUS
  5. CAELYX [Suspect]
     Indication: DRUG USE FOR UNKNOWN INDICATION
     Dates: start: 20060124, end: 20060316
  6. AROMASIN [Concomitant]
     Indication: DRUG USE FOR UNKNOWN INDICATION

REACTIONS (20)
  - ABDOMINAL PAIN [None]
  - ANOREXIA [None]
  - ASTHENIA [None]
  - BONE MARROW TOXICITY [None]
  - CHROMATURIA [None]
  - DISEASE PROGRESSION [None]
  - DRUG ERUPTION [None]
  - FEBRILE NEUTROPENIA [None]
  - GASTRITIS [None]
  - GENERAL PHYSICAL HEALTH DETERIORATION [None]
  - HAEMATOTOXICITY [None]
  - HEPATIC FAILURE [None]
  - JAUNDICE [None]
  - NAUSEA [None]
  - NEUTROPENIA [None]
  - PANCYTOPENIA [None]
  - PRODUCTIVE COUGH [None]
  - PYREXIA [None]
  - STAPHYLOCOCCAL SEPSIS [None]
  - VOMITING [None]
